FAERS Safety Report 6429749-6 (Version None)
Quarter: 2009Q4

REPORT INFORMATION
  Report Type: 
  Country: None (occurrence: None)
  Receive Date: 20091106
  Receipt Date: 20091027
  Transmission Date: 20100525
  Serious: Yes (Hospitalization)
  Sender: FDA-Public Use
  Company Number: US-JNJFOC-20091008480

PATIENT
  Sex: Female
  Weight: 92.99 kg

DRUGS (1)
  1. REMICADE [Suspect]
     Indication: RHEUMATOID ARTHRITIS
     Dosage: TOOK DRUG FOR 2 WEEKS
     Route: 042

REACTIONS (4)
  - BASAL CELL CARCINOMA [None]
  - BREAST CANCER [None]
  - LUPUS-LIKE SYNDROME [None]
  - SQUAMOUS CELL CARCINOMA OF SKIN [None]
